FAERS Safety Report 14314991 (Version 2)
Quarter: 2018Q1

REPORT INFORMATION
  Report Type: Report from Study
  Country: DO (occurrence: DO)
  Receive Date: 20171221
  Receipt Date: 20180316
  Transmission Date: 20180509
  Serious: Yes (Hospitalization)
  Sender: FDA-Public Use
  Company Number: PHHY2017DO188106

PATIENT
  Age: 35 Year
  Sex: Male

DRUGS (1)
  1. GILENYA [Suspect]
     Active Substance: FINGOLIMOD HYDROCHLORIDE
     Indication: PRODUCT USED FOR UNKNOWN INDICATION
     Dosage: UNK
     Route: 065
     Dates: start: 201706

REACTIONS (7)
  - Drug ineffective [Unknown]
  - Pyrexia [Unknown]
  - Leukopenia [Unknown]
  - Gait disturbance [Unknown]
  - Influenza [Recovering/Resolving]
  - Progressive multiple sclerosis [Unknown]
  - Muscle spasticity [Unknown]
